FAERS Safety Report 5418216-4 (Version None)
Quarter: 2007Q3

REPORT INFORMATION
  Report Type: 
  Country: None (occurrence: None)
  Receive Date: 20070817
  Receipt Date: 20070808
  Transmission Date: 20080115
  Serious: Yes (Hospitalization)
  Sender: FDA-Public Use
  Company Number: FR-ROCHE-508701

PATIENT
  Age: 60 Year
  Sex: Male
  Weight: 70 kg

DRUGS (2)
  1. CLONAZEPAM [Suspect]
     Indication: TINNITUS
     Dosage: DOSE TAKEN IN THE EVENING.
     Route: 048
     Dates: start: 20070721
  2. CLONAZEPAM [Concomitant]
     Dates: start: 20070730

REACTIONS (4)
  - MALAISE [None]
  - OVERDOSE [None]
  - SOMNOLENCE [None]
  - SYNCOPE [None]
